FAERS Safety Report 17874127 (Version 1)
Quarter: 2020Q2

REPORT INFORMATION
  Report Type: Spontaneous
  Country: US (occurrence: US)
  Receive Date: 20200609
  Receipt Date: 20200609
  Transmission Date: 20200714
  Serious: No
  Sender: FDA-Public Use
  Company Number: US-AUROBINDO-AUR-APL-2020-001764

PATIENT
  Age: 43 Year
  Sex: Male
  Weight: 99.79 kg

DRUGS (1)
  1. VENLAFAXINE HYDROCHLORIDE EXTENDED-RELEASE CAPSULES 75MG [Suspect]
     Active Substance: VENLAFAXINE HYDROCHLORIDE
     Indication: ANXIETY
     Dosage: 75 MILLIGRAM, ONCE A DAY
     Route: 048

REACTIONS (2)
  - Product substitution issue [Unknown]
  - Drug ineffective [Unknown]
